FAERS Safety Report 23326627 (Version 3)
Quarter: 2024Q1

REPORT INFORMATION
  Report Type: Spontaneous
  Country: US (occurrence: US)
  Receive Date: 20231221
  Receipt Date: 20240209
  Transmission Date: 20240410
  Serious: Yes (Life-Threatening, Hospitalization, Other)
  Sender: FDA-Public Use
  Company Number: US-PFIZER INC-PV202300201872

PATIENT
  Age: 49 Year
  Sex: Female
  Weight: 95.238 kg

DRUGS (2)
  1. DOXORUBICIN HYDROCHLORIDE [Suspect]
     Active Substance: DOXORUBICIN HYDROCHLORIDE
     Indication: Breast cancer stage I
     Dosage: UNK UNK, EVERY 3 WEEKS
     Route: 041
     Dates: start: 200510, end: 200512
  2. DOXORUBICIN HYDROCHLORIDE [Suspect]
     Active Substance: DOXORUBICIN HYDROCHLORIDE
     Dosage: INFUSION 3 WKS
     Dates: start: 200702

REACTIONS (4)
  - Left ventricular failure [Not Recovered/Not Resolved]
  - Cardiomyopathy [Not Recovered/Not Resolved]
  - Cardiomegaly [Unknown]
  - Renal failure [Unknown]

NARRATIVE: CASE EVENT DATE: 20070101
